FAERS Safety Report 6942875-8 (Version None)
Quarter: 2010Q3

REPORT INFORMATION
  Report Type: 
  Country: None (occurrence: None)
  Receive Date: 20100824
  Receipt Date: 20100824
  Transmission Date: 20110219
  Serious: No
  Sender: FDA-Public Use
  Company Number: None

PATIENT
  Sex: Female
  Weight: 50.8029 kg

DRUGS (1)
  1. LOSARTAN POTASSIUM [Suspect]
     Indication: HYPERTENSION
     Dosage: 100 MG TWICE DAILY
     Dates: start: 20100721, end: 20100810

REACTIONS (3)
  - COUGH [None]
  - NIGHT SWEATS [None]
  - RESPIRATORY DISORDER [None]
